FAERS Safety Report 17067145 (Version 1)
Quarter: 2019Q4

REPORT INFORMATION
  Report Type: Report from Study
  Country: US (occurrence: US)
  Receive Date: 20191122
  Receipt Date: 20191122
  Transmission Date: 20200122
  Serious: Yes (Hospitalization)
  Sender: FDA-Public Use
  Company Number: US-PFIZER INC-2019501047

PATIENT
  Age: 50 Year
  Sex: Female
  Weight: 66.7 kg

DRUGS (6)
  1. SILDENAFIL CITRATE. [Suspect]
     Active Substance: SILDENAFIL CITRATE
     Indication: PULMONARY ARTERIAL HYPERTENSION
     Dosage: 40 MG, 1X/DAY
     Route: 048
     Dates: start: 20180427, end: 20190116
  2. PROCARDIA [Suspect]
     Active Substance: NIFEDIPINE
     Indication: RAYNAUD^S PHENOMENON
     Dosage: 30 MG, 1X/DAY
     Route: 048
     Dates: end: 20190116
  3. IMODIUM [Concomitant]
     Active Substance: LOPERAMIDE HYDROCHLORIDE
     Indication: DIARRHOEA
     Dosage: UNK
     Dates: start: 20181120, end: 20190116
  4. OFEV [Suspect]
     Active Substance: NINTEDANIB
     Indication: SYSTEMIC SCLEROSIS PULMONARY
     Dosage: CAPSULE, SOFT
     Route: 048
     Dates: start: 20181119, end: 20190116
  5. UPTRAVI [Suspect]
     Active Substance: SELEXIPAG
     Indication: PULMONARY ARTERIAL HYPERTENSION
     Dosage: 400 UG, 1X/DAY
     Route: 048
     Dates: start: 20181010, end: 20190116
  6. LASIX [Concomitant]
     Active Substance: FUROSEMIDE
     Indication: DYSPNOEA
     Dosage: 40 MG, 1X/DAY
     Route: 048
     Dates: start: 201802

REACTIONS (2)
  - Hypotension [Recovered/Resolved]
  - Pulmonary hypertension [Recovered/Resolved]

NARRATIVE: CASE EVENT DATE: 20190119
